FAERS Safety Report 4826524-0 (Version None)
Quarter: 2005Q4

REPORT INFORMATION
  Report Type: 
  Country: None (occurrence: None)
  Receive Date: 20051111
  Receipt Date: 20050107
  Transmission Date: 20060501
  Serious: Yes (Hospitalization, Other)
  Sender: FDA-Public Use
  Company Number: SG-MERCK-0501USA00930

PATIENT
  Age: 55 Year
  Sex: Male

DRUGS (3)
  1. DECADRON [Suspect]
     Indication: MULTIPLE MYELOMA
     Route: 048
     Dates: start: 20040101
  2. VINCRISTINE SULFATE [Concomitant]
     Indication: MULTIPLE MYELOMA
     Route: 042
     Dates: start: 20040101
  3. DOXORUBICIN [Concomitant]
     Indication: MULTIPLE MYELOMA
     Route: 042
     Dates: start: 20040101

REACTIONS (8)
  - ABDOMINAL PAIN [None]
  - ANTIDIURETIC HORMONE ABNORMALITY [None]
  - CONSTIPATION [None]
  - DYSPNOEA [None]
  - HYPOTENSION [None]
  - HYPOXIA [None]
  - LIFE SUPPORT [None]
  - STRONGYLOIDIASIS [None]
